FAERS Safety Report 4816140-9 (Version None)
Quarter: 2005Q4

REPORT INFORMATION
  Report Type: 
  Country: None (occurrence: None)
  Receive Date: 20051026
  Receipt Date: 20051014
  Transmission Date: 20060501
  Serious: Yes (Disabling)
  Sender: FDA-Public Use
  Company Number: CIP05001859

PATIENT
  Age: 74 Year
  Sex: Female
  Weight: 59 kg

DRUGS (7)
  1. ACTONEL [Suspect]
     Indication: OSTEOPOROSIS
     Dosage: 35 MG ONCE WEEKLY, ORAL
     Route: 048
     Dates: start: 20020101, end: 20041101
  2. LISINOPRIL [Concomitant]
  3. ATENOLOL [Concomitant]
  4. PREMARIN [Concomitant]
  5. MEDROXYPROGESTERONE [Concomitant]
  6. BETIMOL (TIMOLOL) [Concomitant]
  7. TYLENOL [Concomitant]

REACTIONS (3)
  - CONDITION AGGRAVATED [None]
  - IMPAIRED DRIVING ABILITY [None]
  - MACULAR DEGENERATION [None]
